FAERS Safety Report 8941652 (Version 1)
Quarter: 2012Q4

REPORT INFORMATION
  Report Type: Report from Study
  Country: IT (occurrence: IT)
  Receive Date: 20121203
  Receipt Date: 20121203
  Transmission Date: 20130627
  Serious: Yes (Hospitalization)
  Sender: FDA-Public Use
  Company Number: PHHY2012IT110107

PATIENT
  Age: 71 Year
  Sex: Male
  Weight: 75 kg

DRUGS (3)
  1. CERTICAN [Suspect]
     Indication: IMMUNOSUPPRESSION
     Dosage: 2.5 mg, UNK
     Route: 048
     Dates: start: 20070409
  2. TAREG [Concomitant]
     Indication: HYPERTENSION
     Dates: start: 20041004
  3. PLENDIL [Concomitant]
     Indication: HYPERTENSION
     Dates: start: 20041004

REACTIONS (3)
  - Renal failure chronic [Recovered/Resolved with Sequelae]
  - Anaemia [Recovered/Resolved with Sequelae]
  - Pneumonia [Recovered/Resolved with Sequelae]
